FAERS Safety Report 19499675 (Version 2)
Quarter: 2021Q3

REPORT INFORMATION
  Report Type: Spontaneous
  Country: US (occurrence: US)
  Receive Date: 20210707
  Receipt Date: 20210712
  Transmission Date: 20211014
  Serious: No
  Sender: FDA-Public Use
  Company Number: US-SA-2021SA215081

PATIENT
  Age: 55 Year
  Sex: Male

DRUGS (1)
  1. ALLEGRA?D 24 HOUR [Suspect]
     Active Substance: FEXOFENADINE HYDROCHLORIDE\PSEUDOEPHEDRINE HYDROCHLORIDE
     Indication: HYPERSENSITIVITY
     Dosage: UNK UNK, QD

REACTIONS (3)
  - Product residue present [Unknown]
  - Therapeutic response decreased [Unknown]
  - Dry mouth [Unknown]
